FAERS Safety Report 22165619 (Version 2)
Quarter: 2023Q2

REPORT INFORMATION
  Report Type: Spontaneous
  Country: MX (occurrence: MX)
  Receive Date: 20230403
  Receipt Date: 20230428
  Transmission Date: 20230722
  Serious: Yes (Hospitalization)
  Sender: FDA-Public Use
  Company Number: MX-NOVOPROD-1042925

PATIENT
  Sex: Male

DRUGS (1)
  1. NOVOEIGHT [Suspect]
     Active Substance: ANTIHEMOPHILIC FACTOR, HUMAN RECOMBINANT
     Indication: Product used for unknown indication
     Dosage: UNK

REACTIONS (1)
  - Hospitalisation [Not Recovered/Not Resolved]
